FAERS Safety Report 13132772 (Version 3)
Quarter: 2017Q2

REPORT INFORMATION
  Report Type: Spontaneous
  Country: IT (occurrence: IT)
  Receive Date: 20170120
  Receipt Date: 20170421
  Transmission Date: 20170830
  Serious: Yes (Death, Other)
  Sender: FDA-Public Use
  Company Number: IT-TEVA-730078ACC

PATIENT
  Age: 75 Year
  Sex: Male
  Weight: 70 kg

DRUGS (3)
  1. EPIRUBICIN [Suspect]
     Active Substance: EPIRUBICIN
     Indication: PROSTATE CANCER
     Route: 065
  2. OCTREOTIDE. [Concomitant]
     Active Substance: OCTREOTIDE
     Indication: PROSTATE CANCER
     Dosage: 0.1MG EVERY 8 HOURS SUBCUTANEOUSLY WAS ADDED FOR FURTHER 13 DAYS
     Route: 065
  3. CARBOPLATIN. [Suspect]
     Active Substance: CARBOPLATIN
     Indication: PROSTATE CANCER
     Route: 065

REACTIONS (5)
  - Intestinal perforation [Fatal]
  - Febrile neutropenia [Unknown]
  - Neutropenia [Fatal]
  - Sepsis [Fatal]
  - Diverticulitis [Not Recovered/Not Resolved]
